FAERS Safety Report 17207341 (Version 8)
Quarter: 2022Q1

REPORT INFORMATION
  Report Type: Report from Study
  Country: CA (occurrence: CA)
  Receive Date: 20191227
  Receipt Date: 20220207
  Transmission Date: 20220423
  Serious: Yes (Other)
  Sender: FDA-Public Use
  Company Number: None

PATIENT
  Sex: Female

DRUGS (8)
  1. ERELZI [Suspect]
     Active Substance: ETANERCEPT-SZZS
     Indication: Rheumatoid arthritis
     Dosage: 50 MG, QW
     Route: 058
     Dates: start: 20191125
  2. METHOTREXATE [Suspect]
     Active Substance: METHOTREXATE
     Indication: Product used for unknown indication
     Dosage: UNK UNK, QW
     Route: 065
     Dates: start: 201605, end: 201610
  3. LEFLUNOMIDE [Suspect]
     Active Substance: LEFLUNOMIDE
     Indication: Product used for unknown indication
     Dosage: UNK UNK, QW
     Route: 065
     Dates: start: 201703
  4. ARAVA [Concomitant]
     Active Substance: LEFLUNOMIDE
     Indication: Product used for unknown indication
     Dosage: UNK
     Route: 065
     Dates: start: 2017
  5. NAPROXEN [Concomitant]
     Active Substance: NAPROXEN
     Indication: Product used for unknown indication
     Dosage: UNK UNK, UNKNOWN
     Route: 065
  6. ADVIL [Concomitant]
     Active Substance: IBUPROFEN
     Indication: Product used for unknown indication
     Dosage: UNK UNK, UNKNOWN
     Route: 065
  7. CEFADROXIL [Concomitant]
     Active Substance: CEFADROXIL
     Indication: Product used for unknown indication
     Dosage: UNK
     Route: 065
     Dates: start: 20191226
  8. CORTISONE [Concomitant]
     Active Substance: CORTISONE
     Indication: Product used for unknown indication
     Dosage: UNK
     Route: 065

REACTIONS (15)
  - Rheumatoid arthritis [Unknown]
  - Septic shock [Unknown]
  - Cellulitis [Unknown]
  - Peripheral swelling [Unknown]
  - Arthralgia [Unknown]
  - Fatigue [Unknown]
  - Pain [Unknown]
  - Asthenia [Unknown]
  - Gait disturbance [Unknown]
  - Grip strength decreased [Unknown]
  - General physical health deterioration [Unknown]
  - Renal pain [Unknown]
  - Discomfort [Unknown]
  - Drug intolerance [Unknown]
  - Drug ineffective [Unknown]
